FAERS Safety Report 21763279 (Version 5)
Quarter: 2023Q1

REPORT INFORMATION
  Report Type: Report from Study
  Country: IT (occurrence: IT)
  Receive Date: 20221221
  Receipt Date: 20230222
  Transmission Date: 20230417
  Serious: Yes (Death, Hospitalization)
  Sender: FDA-Public Use
  Company Number: IT-SEATTLE GENETICS-2022SGN09897

PATIENT
  Age: 80 Year
  Sex: Male
  Weight: 77 kg

DRUGS (4)
  1. BRENTUXIMAB VEDOTIN [Suspect]
     Active Substance: BRENTUXIMAB VEDOTIN
     Indication: Peripheral T-cell lymphoma unspecified
     Dosage: 1.8 MG/KG, Q21D, ON DAYS 1 OF EVERY 21-DAY CYCLE
     Route: 042
     Dates: start: 20220831, end: 20221012
  2. CYCLOPHOSPHAMIDE [Suspect]
     Active Substance: CYCLOPHOSPHAMIDE
     Indication: Peripheral T-cell lymphoma unspecified
     Dosage: 750 MG/M2, Q21D, ON DAY 1 OF EACH CYCLE
     Route: 042
     Dates: start: 20220831, end: 20221012
  3. DOXORUBICIN [Suspect]
     Active Substance: DOXORUBICIN
     Indication: Peripheral T-cell lymphoma unspecified
     Dosage: 50 MG/M2, Q21D, ON DAY OF 1 OF EACH CYCLE
     Route: 042
     Dates: start: 20220831, end: 20221012
  4. PREDNISONE [Suspect]
     Active Substance: PREDNISONE
     Indication: Peripheral T-cell lymphoma unspecified
     Dosage: 100 MG, QD, ON DAYS 1-5 OF EACH CYCLE
     Route: 048
     Dates: start: 20220831, end: 20221012

REACTIONS (4)
  - General physical health deterioration [Fatal]
  - Ileal perforation [Recovered/Resolved]
  - Febrile neutropenia [Recovered/Resolved]
  - Cognitive disorder [Fatal]

NARRATIVE: CASE EVENT DATE: 20221019
